FAERS Safety Report 12272304 (Version 1)
Quarter: 2016Q2

REPORT INFORMATION
  Report Type: Spontaneous
  Country: US (occurrence: US)
  Receive Date: 20160415
  Receipt Date: 20160415
  Transmission Date: 20160815
  Serious: Yes (Hospitalization, Other)
  Sender: FDA-Public Use
  Company Number: US-MDT-ADR-2016-00459

PATIENT
  Sex: Female

DRUGS (2)
  1. LIORESAL [Suspect]
     Active Substance: BACLOFEN
     Dosage: 120.8MCG/DAY
     Route: 037
  2. ORAL BACLOFEN [Suspect]
     Active Substance: BACLOFEN
     Route: 048

REACTIONS (9)
  - Muscle tightness [Unknown]
  - Overdose [Unknown]
  - Muscle spasms [Unknown]
  - Gait disturbance [Unknown]
  - Therapeutic response decreased [Unknown]
  - Medical device site pain [Unknown]
  - Pain in extremity [Unknown]
  - Muscle spasticity [Unknown]
  - No therapeutic response [Unknown]
